FAERS Safety Report 7179608-9 (Version None)
Quarter: 2010Q4

REPORT INFORMATION
  Report Type: 
  Country: None (occurrence: None)
  Receive Date: 20101221
  Receipt Date: 20101210
  Transmission Date: 20110411
  Serious: Yes (Other)
  Sender: FDA-Public Use
  Company Number: US-JNJCH-2010028801

PATIENT
  Sex: Female

DRUGS (1)
  1. EXTRA STRENGTH ROLAIDS SOFTCHEWS WILD CHERRY [Suspect]
     Indication: DYSPEPSIA
     Dosage: TEXT:AS NEEDED
     Route: 048
     Dates: start: 20101201, end: 20101201

REACTIONS (5)
  - ASTHENIA [None]
  - DEHYDRATION [None]
  - DIARRHOEA [None]
  - PRODUCT QUALITY ISSUE [None]
  - VOMITING [None]
